FAERS Safety Report 6838918-2 (Version None)
Quarter: 2010Q3

REPORT INFORMATION
  Report Type: 
  Country: None (occurrence: None)
  Receive Date: 20100713
  Receipt Date: 20070820
  Transmission Date: 20110219
  Serious: No
  Sender: FDA-Public Use
  Company Number: US-PFIZER INC-2007040541

PATIENT
  Sex: Female
  Weight: 65 kg

DRUGS (7)
  1. CHANTIX [Suspect]
     Indication: SMOKING CESSATION THERAPY
     Dates: start: 20070519
  2. GABAPENTIN [Concomitant]
  3. EFFEXOR [Concomitant]
  4. ZYRTEC [Concomitant]
  5. TRAZODONE HYDROCHLORIDE [Concomitant]
  6. ABILIFY [Concomitant]
  7. KLONOPIN [Concomitant]

REACTIONS (4)
  - DRUG INEFFECTIVE [None]
  - EYE IRRITATION [None]
  - EYE PRURITUS [None]
  - RASH [None]
